FAERS Safety Report 4860910-8 (Version None)
Quarter: 2005Q4

REPORT INFORMATION
  Report Type: 
  Country: None (occurrence: None)
  Receive Date: 20051216
  Receipt Date: 20051130
  Transmission Date: 20060501
  Serious: Yes (Hospitalization, Other)
  Sender: FDA-Public Use
  Company Number: JP_040703710

PATIENT
  Age: 63 Year
  Sex: Male
  Weight: 39.5 kg

DRUGS (5)
  1. GEMZAR [Suspect]
     Indication: PANCREATIC CARCINOMA
     Dosage: 1200 MG, OTHER, INTRAVENOUS
     Route: 042
     Dates: start: 20040618, end: 20040618
  2. PURSENNID [Concomitant]
  3. GLYCERIN (GLYCEROL) [Concomitant]
  4. CEFAZOLIN SODIUM [Concomitant]
  5. KYTRIL - FOR INFUSION (GRANISETRON HYDROCHLORIDE) [Concomitant]

REACTIONS (2)
  - BONE MARROW FAILURE [None]
  - DRUG ERUPTION [None]
